FAERS Safety Report 4775803-4 (Version None)
Quarter: 2005Q3

REPORT INFORMATION
  Report Type: 
  Country: None (occurrence: None)
  Receive Date: 20050922
  Receipt Date: 20050909
  Transmission Date: 20060218
  Serious: Yes (Other)
  Sender: FDA-Public Use
  Company Number: US-AMGEN-US149749

PATIENT
  Sex: Male

DRUGS (5)
  1. ENBREL [Suspect]
     Indication: PSORIASIS
     Route: 058
     Dates: start: 20050818
  2. PLAQUENIL [Concomitant]
     Route: 048
     Dates: start: 20031201
  3. MOBIC [Concomitant]
     Route: 048
     Dates: start: 20041201
  4. LIPITOR [Concomitant]
  5. ZOLOFT [Concomitant]

REACTIONS (2)
  - CONDITION AGGRAVATED [None]
  - PARAESTHESIA [None]
